FAERS Safety Report 6495414-2 (Version None)
Quarter: 2009Q4

REPORT INFORMATION
  Report Type: 
  Country: None (occurrence: None)
  Receive Date: 20091214
  Receipt Date: 20090810
  Transmission Date: 20100525
  Serious: No
  Sender: FDA-Public Use
  Company Number: US-BRISTOL-MYERS SQUIBB COMPANY-14668479

PATIENT
  Age: 49 Year
  Sex: Female
  Weight: 63 kg

DRUGS (3)
  1. ABILIFY [Suspect]
     Indication: DEPRESSION
     Dosage: STARTED 6 MONTHS AGO
     Dates: end: 20090601
  2. PROZAC [Suspect]
     Indication: DEPRESSION
     Dosage: TITRATED TO 40MG FROM 10MG
  3. KLONOPIN [Concomitant]

REACTIONS (2)
  - DYSKINESIA [None]
  - TREMOR [None]
